FAERS Safety Report 18012550 (Version 1)
Quarter: 2020Q3

REPORT INFORMATION
  Report Type: Spontaneous
  Country: VE (occurrence: VE)
  Receive Date: 20200713
  Receipt Date: 20200713
  Transmission Date: 20201103
  Serious: Yes (Other)
  Sender: FDA-Public Use
  Company Number: PHHY2019VE088922

PATIENT
  Sex: Male

DRUGS (1)
  1. GLIVEC [Suspect]
     Active Substance: IMATINIB MESYLATE
     Indication: CHRONIC MYELOID LEUKAEMIA
     Dosage: 4 DF, UNK
     Route: 065

REACTIONS (7)
  - Asphyxia [Unknown]
  - Abdominal pain upper [Unknown]
  - Asthenia [Unknown]
  - Bone pain [Unknown]
  - Dizziness [Unknown]
  - Dyspnoea [Unknown]
  - Contusion [Unknown]
